FAERS Safety Report 14339628 (Version 6)
Quarter: 2018Q1

REPORT INFORMATION
  Report Type: Spontaneous
  Country: IT (occurrence: IT)
  Receive Date: 20171230
  Receipt Date: 20180208
  Transmission Date: 20180509
  Serious: Yes (Life-Threatening, Hospitalization, Congenital Anomaly, Other)
  Sender: FDA-Public Use
  Company Number: IT-AUROBINDO-AUR-APL-2017-48382

PATIENT
  Age: 33 Week
  Sex: Female
  Weight: 1.97 kg

DRUGS (17)
  1. PARACETAMOL [Suspect]
     Active Substance: ACETAMINOPHEN
     Dosage: 1 DF, QD
     Route: 065
  2. DICLOFENAC [Suspect]
     Active Substance: DICLOFENAC
     Indication: FOETAL EXPOSURE DURING PREGNANCY
     Dosage: 75 MG, ONCE A DAY
     Route: 064
  3. PARACETAMOL [Suspect]
     Active Substance: ACETAMINOPHEN
     Dosage: MATERNAL DOSE: 1 DF, QD (1 UG/LITRE) ()
     Route: 064
  4. NIMESULIDE [Suspect]
     Active Substance: NIMESULIDE
     Indication: FOETAL EXPOSURE DURING PREGNANCY
     Dosage: 1 DF, ONCE A DAY
     Route: 064
  5. PARACETAMOL [Suspect]
     Active Substance: ACETAMINOPHEN
     Indication: PRODUCT USED FOR UNKNOWN INDICATION
     Dosage: 1 DF, QD ()
     Route: 064
  6. NIMESULIDE [Suspect]
     Active Substance: NIMESULIDE
     Indication: PRODUCT USED FOR UNKNOWN INDICATION
     Dosage: 100 MG, UNK
     Route: 064
  7. DICLOFENAC SODIUM. [Suspect]
     Active Substance: DICLOFENAC SODIUM
     Indication: PRODUCT USED FOR UNKNOWN INDICATION
     Dosage: MATERNAL DOSE: 75 MG, QD ()
     Route: 064
  8. DICLOFENAC [Suspect]
     Active Substance: DICLOFENAC
     Dosage: MATERNAL DOSE: 75 MG, QD ()
  9. NIMESULIDE [Suspect]
     Active Substance: NIMESULIDE
     Dosage: 1 DF, QD
     Route: 064
  10. NIMESULIDE [Suspect]
     Active Substance: NIMESULIDE
     Dosage: MATERNAL DOSE: 1 DF, QD (1 UG/LITRE) ()
  11. PARACETAMOL [Suspect]
     Active Substance: ACETAMINOPHEN
     Indication: FOETAL EXPOSURE DURING PREGNANCY
     Dosage: MATERNAL DOSE: 1 DF, QD
     Route: 064
  12. DICLOFENAC [Suspect]
     Active Substance: DICLOFENAC
     Indication: PRODUCT USED FOR UNKNOWN INDICATION
     Dosage: 75 MG, QD
     Route: 064
  13. PARACETAMOL [Suspect]
     Active Substance: ACETAMINOPHEN
     Dosage: MATERNAL DOSE: 1 DF, QD ()
     Route: 064
  14. NIMESULIDE [Suspect]
     Active Substance: NIMESULIDE
     Dosage: 100 MG, UNK
     Route: 064
  15. NIMESULIDE [Suspect]
     Active Substance: NIMESULIDE
     Dosage: MATERNAL DOSE: 100 MG, UNK ()
  16. DICLOFENAC [Suspect]
     Active Substance: DICLOFENAC
     Dosage: 75 MG, QD
     Route: 064
  17. PARACETAMOL [Suspect]
     Active Substance: ACETAMINOPHEN
     Dosage: 1 DF, QD

REACTIONS (10)
  - Neonatal respiratory acidosis [Unknown]
  - Neonatal respiratory acidosis [Recovered/Resolved]
  - Foetal exposure during pregnancy [Unknown]
  - Premature baby [Unknown]
  - Polyuria [Unknown]
  - Ductus arteriosus stenosis foetal [Unknown]
  - Renal failure neonatal [Unknown]
  - Bradycardia neonatal [Unknown]
  - Neonatal respiratory distress syndrome [Unknown]
  - Cyanosis neonatal [Unknown]
